FAERS Safety Report 14920103 (Version 1)
Quarter: 2018Q2

REPORT INFORMATION
  Report Type: Spontaneous
  Country: US (occurrence: US)
  Receive Date: 20180521
  Receipt Date: 20180521
  Transmission Date: 20180711
  Serious: No
  Sender: FDA-Public Use
  Company Number: US-BEH-2018090668

PATIENT
  Sex: Female
  Weight: 70.3 kg

DRUGS (20)
  1. DIPHENHYDRAMINE. [Concomitant]
     Active Substance: DIPHENHYDRAMINE
  2. LMX                                /00033401/ [Concomitant]
  3. MINOCYCLINE [Concomitant]
     Active Substance: MINOCYCLINE\MINOCYCLINE HYDROCHLORIDE
  4. PAXIL [Concomitant]
     Active Substance: PAROXETINE HYDROCHLORIDE
  5. HIZENTRA [Suspect]
     Active Substance: HUMAN IMMUNOGLOBULIN G
     Indication: IMMUNODEFICIENCY COMMON VARIABLE
     Dosage: 10 G, QW
     Route: 058
     Dates: start: 20121011
  6. HIZENTRA [Suspect]
     Active Substance: HUMAN IMMUNOGLOBULIN G
     Dosage: UNK
     Route: 058
  7. HIZENTRA [Suspect]
     Active Substance: HUMAN IMMUNOGLOBULIN G
     Dosage: UNK
     Route: 058
  8. DOXYCYCLINE. [Concomitant]
     Active Substance: DOXYCYCLINE
  9. METHOTREXATE. [Concomitant]
     Active Substance: METHOTREXATE
  10. ESTRADIOL. [Concomitant]
     Active Substance: ESTRADIOL
  11. PROBIOTIC                          /06395501/ [Concomitant]
     Active Substance: BIFIDOBACTERIUM ANIMALIS LACTIS
  12. PREDNISONE. [Concomitant]
     Active Substance: PREDNISONE
  13. FOLIC ACID. [Concomitant]
     Active Substance: FOLIC ACID
  14. MUPIROCIN. [Concomitant]
     Active Substance: MUPIROCIN
  15. ZANTAC [Concomitant]
     Active Substance: RANITIDINE HYDROCHLORIDE
  16. ADVAIR HFA [Concomitant]
     Active Substance: FLUTICASONE PROPIONATE\SALMETEROL XINAFOATE
  17. PROAIR HFA [Concomitant]
     Active Substance: ALBUTEROL SULFATE
  18. ACETAMINOPHEN. [Concomitant]
     Active Substance: ACETAMINOPHEN
  19. EPINEPHRINE. [Concomitant]
     Active Substance: EPINEPHRINE
  20. LEUCOVORIN                         /00566701/ [Concomitant]
     Active Substance: LEUCOVORIN

REACTIONS (1)
  - Urticaria [Unknown]
